FAERS Safety Report 7090123-3 (Version None)
Quarter: 2010Q4

REPORT INFORMATION
  Report Type: 
  Country: None (occurrence: None)
  Receive Date: 20101105
  Receipt Date: 20101105
  Transmission Date: 20110411
  Serious: No
  Sender: FDA-Public Use
  Company Number: None

PATIENT
  Sex: Male
  Weight: 99.7913 kg

DRUGS (1)
  1. FINASTERIDE [Suspect]
     Indication: PROSTATISM
     Dosage: 5 MG 1 A DAY BY MOUTH
     Route: 048
     Dates: start: 20100915

REACTIONS (3)
  - DRUG INEFFECTIVE [None]
  - POLLAKIURIA [None]
  - PRODUCT FORMULATION ISSUE [None]
